FAERS Safety Report 9230488 (Version 3)
Quarter: 2013Q4

REPORT INFORMATION
  Report Type: Spontaneous
  Country: US (occurrence: None)
  Receive Date: 20121031
  Receipt Date: 20131226
  Transmission Date: 20140711
  Serious: Yes (Hospitalization)
  Sender: FDA-Public Use
  Company Number: PHEH2012US016883

PATIENT
  Age: 37 Year
  Sex: Female
  Weight: 58 kg

DRUGS (5)
  1. GILENYA [Suspect]
     Indication: MULTIPLE SCLEROSIS
     Route: 048
     Dates: start: 201207
  2. LASIX (FUROSEMIDE) [Concomitant]
  3. PRILOSEC [Concomitant]
  4. FAMPRIDINE [Concomitant]
  5. TRAMADOL HYDROCHLORIDE [Concomitant]

REACTIONS (6)
  - Hypoaesthesia [None]
  - Memory impairment [None]
  - Multiple sclerosis relapse [None]
  - Abasia [None]
  - Limb discomfort [None]
  - Muscle spasms [None]
